FAERS Safety Report 6260919-6 (Version None)
Quarter: 2009Q3

REPORT INFORMATION
  Report Type: 
  Country: None (occurrence: None)
  Receive Date: 20090709
  Receipt Date: 20090703
  Transmission Date: 20100115
  Serious: Yes (Other)
  Sender: FDA-Public Use
  Company Number: NO-B.I. PHARMACEUTICALS,INC./RIDGEFIELD-2009-SW-00166NO

PATIENT
  Sex: Female

DRUGS (2)
  1. MICARDIS PLUS TAB 80 MG + 25 MG [Suspect]
     Indication: HYPERTENSION
     Route: 048
     Dates: start: 20080101
  2. SIMVASTATIN [Suspect]
     Dosage: 40 MG
     Route: 048
     Dates: start: 20080101

REACTIONS (3)
  - COGNITIVE DISORDER [None]
  - JOINT SWELLING [None]
  - MYALGIA [None]
